FAERS Safety Report 23983628 (Version 1)
Quarter: 2024Q2

REPORT INFORMATION
  Report Type: Spontaneous
  Country: US (occurrence: US)
  Receive Date: 20240618
  Receipt Date: 20240618
  Transmission Date: 20240716
  Serious: Yes (Hospitalization, Other)
  Sender: FDA-Public Use
  Company Number: US-AVET LIFESCIENCES LTD-2024-AVET-000213

PATIENT
  Age: 47 Year
  Sex: Female

DRUGS (1)
  1. ACETAMINOPHEN [Suspect]
     Active Substance: ACETAMINOPHEN
     Indication: Abdominal pain
     Dosage: ONE TO TWO TABLETS OF 500 MG EVERY TWO TO THREE HOURS (6000-12000 MG/DAY) OVER THE PAST WEEK
     Route: 065

REACTIONS (2)
  - Overdose [Recovering/Resolving]
  - Acute hepatic failure [Recovering/Resolving]
